FAERS Safety Report 14060212 (Version 1)
Quarter: 2017Q4

REPORT INFORMATION
  Report Type: Spontaneous
  Country: SE (occurrence: SE)
  Receive Date: 20171006
  Receipt Date: 20171006
  Transmission Date: 20180321
  Serious: Yes (Hospitalization)
  Sender: FDA-Public Use
  Company Number: SE-TAKEDA-2017TUS020543

PATIENT
  Sex: Male
  Weight: 3.93 kg

DRUGS (1)
  1. BRINTELLIX [Suspect]
     Active Substance: VORTIOXETINE HYDROBROMIDE
     Indication: BURNOUT SYNDROME
     Dosage: 10 MG, QD
     Route: 064
     Dates: end: 201709

REACTIONS (4)
  - Neonatal respiratory distress syndrome [Recovered/Resolved]
  - Foetal distress syndrome [Recovered/Resolved]
  - Product use in unapproved indication [Unknown]
  - Foetal exposure during pregnancy [Recovered/Resolved]

NARRATIVE: CASE EVENT DATE: 201709
